FAERS Safety Report 14846781 (Version 4)
Quarter: 2018Q4

REPORT INFORMATION
  Report Type: Report from Study
  Country: US (occurrence: US)
  Receive Date: 20180504
  Receipt Date: 20181116
  Transmission Date: 20190204
  Serious: Yes (Hospitalization, Other)
  Sender: FDA-Public Use
  Company Number: US-CIPLA (EU) LIMITED-2018US17318

PATIENT

DRUGS (10)
  1. LEVETIRACETAM. [Suspect]
     Active Substance: LEVETIRACETAM
     Dosage: UNK
     Route: 065
  2. METOCLOPRAMIDE. [Suspect]
     Active Substance: METOCLOPRAMIDE
     Dosage: UNK
     Route: 065
  3. ACETAMINOPHEN. [Suspect]
     Active Substance: ACETAMINOPHEN
     Dosage: UNK
     Route: 065
  4. ZOLPIDEM TARTRATE. [Suspect]
     Active Substance: ZOLPIDEM TARTRATE
     Dosage: UNK
     Route: 065
  5. GABAPENTIN. [Suspect]
     Active Substance: GABAPENTIN
     Dosage: UNK
     Route: 065
  6. DIPHENHYDRAMINE. [Suspect]
     Active Substance: DIPHENHYDRAMINE
     Dosage: UNK
     Route: 065
  7. OXYCODONE [Suspect]
     Active Substance: OXYCODONE
     Dosage: UNK
     Route: 065
  8. MARIJUANA [Suspect]
     Active Substance: CANNABIS SATIVA SUBSP. INDICA TOP
     Dosage: UNK
     Route: 065
  9. LAMOTRIGINE. [Suspect]
     Active Substance: LAMOTRIGINE
     Dosage: UNK
     Route: 065
  10. METHOCARBAMOL. [Suspect]
     Active Substance: METHOCARBAMOL
     Dosage: UNK
     Route: 065

REACTIONS (5)
  - Seizure [Unknown]
  - Generalised tonic-clonic seizure [Unknown]
  - Toxicity to various agents [Unknown]
  - Overdose [Unknown]
  - Epilepsy [Unknown]
